FAERS Safety Report 8887544 (Version 1)
Quarter: 2012Q4

REPORT INFORMATION
  Report Type: Spontaneous
  Country: US (occurrence: None)
  Receive Date: 20121101
  Receipt Date: 20121101
  Transmission Date: 20130627
  Serious: Yes (Hospitalization)
  Sender: FDA-Public Use
  Company Number: None

PATIENT
  Sex: Female

DRUGS (1)
  1. ENBREL [Suspect]
     Dosage: 50mg weekly sq
     Route: 058
     Dates: start: 20120308, end: 20121022

REACTIONS (2)
  - Localised infection [None]
  - Amputation [None]
